FAERS Safety Report 5648109-9 (Version None)
Quarter: 2008Q1

REPORT INFORMATION
  Report Type: 
  Country: None (occurrence: None)
  Receive Date: 20080229
  Receipt Date: 20080229
  Transmission Date: 20080703
  Serious: Yes (Hospitalization)
  Sender: FDA-Public Use
  Company Number: None

PATIENT
  Age: 62 Year
  Sex: Male

DRUGS (4)
  1. WARFARIN SODIUM [Suspect]
     Indication: ATRIAL FIBRILLATION
     Dosage: 1MG EVERY DAY PO
     Route: 048
     Dates: start: 20050516, end: 20080131
  2. WARFARIN SODIUM [Suspect]
     Indication: HEART VALVE REPLACEMENT
     Dosage: 1MG EVERY DAY PO
     Route: 048
     Dates: start: 20050516, end: 20080131
  3. NABUMETONE [Suspect]
     Indication: ANKYLOSING SPONDYLITIS
     Dosage: 750MG BID PO
     Route: 048
     Dates: start: 20050427, end: 20080131
  4. NABUMETONE [Suspect]
     Indication: ARTHRITIS
     Dosage: 750MG BID PO
     Route: 048
     Dates: start: 20050427, end: 20080131

REACTIONS (2)
  - GASTRIC HAEMORRHAGE [None]
  - INTERNATIONAL NORMALISED RATIO ABNORMAL [None]
